FAERS Safety Report 5258666-2 (Version None)
Quarter: 2007Q1

REPORT INFORMATION
  Report Type: 
  Country: None (occurrence: None)
  Receive Date: 20070305
  Receipt Date: 20070215
  Transmission Date: 20070707
  Serious: Yes (Death)
  Sender: FDA-Public Use
  Company Number: 237334

PATIENT
  Age: 32 Year
  Sex: Female
  Weight: 45 kg

DRUGS (3)
  1. HERCEPTIN [Suspect]
     Indication: BREAST CANCER METASTATIC
     Dosage: 85.4 MG, 1/WEEK, INTRAVENOUS
     Route: 042
     Dates: start: 20070123, end: 20070130
  2. PACLITAXEL [Suspect]
     Indication: BREAST CANCER METASTATIC
     Dosage: 109.4 MG, 1/WEEK, INTRAVENOUS
     Route: 042
     Dates: start: 20070123, end: 20070130
  3. MYOCET(DOXORUBICIN/DOXORUBICIN HYDROCHLORIDE) [Suspect]
     Indication: BREAST CANCER METASTATIC
     Dosage: 68 MG, Q3W, INTRAVENOUS
     Route: 042
     Dates: start: 20070123, end: 20070123

REACTIONS (4)
  - DIARRHOEA [None]
  - HAEMATOCRIT DECREASED [None]
  - HAEMOGLOBIN DECREASED [None]
  - WHITE BLOOD CELL COUNT INCREASED [None]
